FAERS Safety Report 7101306-8 (Version None)
Quarter: 2010Q4

REPORT INFORMATION
  Report Type: 
  Country: None (occurrence: None)
  Receive Date: 20101105
  Receipt Date: 20101020
  Transmission Date: 20110411
  Serious: Yes (Hospitalization)
  Sender: FDA-Public Use
  Company Number: 2010004521

PATIENT
  Age: 81 Year
  Sex: Male

DRUGS (1)
  1. TARCEVA [Suspect]
     Indication: LUNG NEOPLASM MALIGNANT
     Dosage: (100 MG, QD), ORAL
     Route: 048
     Dates: start: 20100818

REACTIONS (2)
  - PNEUMONIA [None]
  - SMALL INTESTINAL OBSTRUCTION [None]
